FAERS Safety Report 7084157-2 (Version None)
Quarter: 2010Q4

REPORT INFORMATION
  Report Type: 
  Country: None (occurrence: None)
  Receive Date: 20101104
  Receipt Date: 20101018
  Transmission Date: 20110411
  Serious: Yes (Hospitalization, Other)
  Sender: FDA-Public Use
  Company Number: US-BAYER-201013344NA

PATIENT
  Age: 19 Year
  Sex: Female
  Weight: 82 kg

DRUGS (3)
  1. YASMIN [Suspect]
     Indication: PRODUCT USED FOR UNKNOWN INDICATION
     Route: 048
  2. YAZ [Suspect]
     Indication: PRODUCT USED FOR UNKNOWN INDICATION
     Route: 048
     Dates: start: 20080101
  3. DILANTIN [Concomitant]
     Dates: start: 20070101

REACTIONS (7)
  - CONVULSION [None]
  - HEADACHE [None]
  - LOSS OF CONSCIOUSNESS [None]
  - PETIT MAL EPILEPSY [None]
  - RESPIRATORY DISORDER [None]
  - UNEVALUABLE EVENT [None]
  - URINARY INCONTINENCE [None]
